FAERS Safety Report 5330147-7 (Version None)
Quarter: 2007Q2

REPORT INFORMATION
  Report Type: 
  Country: None (occurrence: None)
  Receive Date: 20070521
  Receipt Date: 20070511
  Transmission Date: 20071010
  Serious: Yes (Hospitalization)
  Sender: FDA-Public Use
  Company Number: US-KINGPHARMUSA00001-K200700585

PATIENT

DRUGS (1)
  1. LORABID [Suspect]
     Indication: EAR INFECTION
     Dosage: 200 MG/5ML, QD
     Route: 048
     Dates: start: 20070326, end: 20070326

REACTIONS (5)
  - ANAPHYLACTIC SHOCK [None]
  - BLOOD PRESSURE DECREASED [None]
  - GENERALISED ERYTHEMA [None]
  - SWELLING [None]
  - SYNCOPE [None]
